FAERS Safety Report 23111004 (Version 1)
Quarter: 2023Q4

REPORT INFORMATION
  Report Type: Spontaneous
  Country: US (occurrence: None)
  Receive Date: 20231025
  Receipt Date: 20231025
  Transmission Date: 20240109
  Serious: Yes (Hospitalization)
  Sender: FDA-Public Use
  Company Number: None

PATIENT
  Sex: Male

DRUGS (2)
  1. BALVERSA [Suspect]
     Active Substance: ERDAFITINIB
     Indication: Neoplasm
     Dosage: FREQUENCY : DAILY;?
     Route: 048
     Dates: start: 202306
  2. BALVERSA [Suspect]
     Active Substance: ERDAFITINIB
     Indication: Bladder neoplasm

REACTIONS (3)
  - Device dislocation [None]
  - Confusional state [None]
  - Delusion [None]
